FAERS Safety Report 5407962-4 (Version None)
Quarter: 2007Q3

REPORT INFORMATION
  Report Type: 
  Country: None (occurrence: None)
  Receive Date: 20070803
  Receipt Date: 20070723
  Transmission Date: 20080115
  Serious: Yes (Other)
  Sender: FDA-Public Use
  Company Number: 2007SP011964

PATIENT
  Age: 41 Year
  Sex: Female
  Weight: 45.3597 kg

DRUGS (3)
  1. CLARITIN [Suspect]
     Indication: COUGH
     Dosage: 1 DF; QD; PO
     Route: 048
     Dates: start: 20070607, end: 20070608
  2. CLARITIN [Suspect]
     Indication: HYPERSENSITIVITY
     Dosage: 1 DF; QD; PO
     Route: 048
     Dates: start: 20070607, end: 20070608
  3. CLARITIN [Suspect]
     Indication: NASAL CONGESTION
     Dosage: 1 DF; QD; PO
     Route: 048
     Dates: start: 20070607, end: 20070608

REACTIONS (7)
  - ARTHRALGIA [None]
  - CONFUSIONAL STATE [None]
  - DIZZINESS [None]
  - DRUG HYPERSENSITIVITY [None]
  - DRUG INEFFECTIVE [None]
  - HEADACHE [None]
  - METRORRHAGIA [None]
